FAERS Safety Report 6017104-2 (Version None)
Quarter: 2008Q4

REPORT INFORMATION
  Report Type: 
  Country: None (occurrence: None)
  Receive Date: 20081223
  Receipt Date: 20081215
  Transmission Date: 20090506
  Serious: No
  Sender: FDA-Public Use
  Company Number: US-JNJFOC-20081204187

PATIENT
  Sex: Male
  Weight: 77.11 kg

DRUGS (3)
  1. FENTANYL TRANSDERMAL SYSTEM [Suspect]
     Indication: BACK PAIN
     Route: 062
  2. VICODIN ES [Concomitant]
     Route: 065
  3. UNSPECIFIED MEDICATIONS [Concomitant]
     Route: 065

REACTIONS (8)
  - APPLICATION SITE EROSION [None]
  - DIZZINESS [None]
  - FLUSHING [None]
  - HYPERHIDROSIS [None]
  - INCORRECT DRUG ADMINISTRATION DURATION [None]
  - MALAISE [None]
  - PSYCHOMOTOR HYPERACTIVITY [None]
  - TREMOR [None]
